FAERS Safety Report 23288029 (Version 1)
Quarter: 2023Q4

REPORT INFORMATION
  Report Type: Spontaneous
  Country: CA (occurrence: CA)
  Receive Date: 20231212
  Receipt Date: 20231212
  Transmission Date: 20240109
  Serious: Yes (Other)
  Sender: FDA-Public Use
  Company Number: CA-PFIZER INC-202300435747

PATIENT
  Age: 67 Year
  Sex: Female

DRUGS (8)
  1. ABRILADA [Suspect]
     Active Substance: ADALIMUMAB-AFZB
     Indication: Seronegative arthritis
     Dosage: 40 MG, 1 EVERY 14 DAYS
  2. HULIO [Suspect]
     Active Substance: ADALIMUMAB-FKJP
     Indication: Seronegative arthritis
     Dosage: 40 MG, 1 EVERY 14 DAYS
     Route: 058
  3. DOXAZOSIN [Concomitant]
     Active Substance: DOXAZOSIN MESYLATE
     Dosage: UNK
  4. FOLIC ACID [Concomitant]
     Active Substance: FOLIC ACID
     Dosage: UNK
  5. LEVOTHYROXINE [Concomitant]
     Active Substance: LEVOTHYROXINE
     Dosage: UNK
     Route: 065
  6. PANTOPRAZOLE MAGNESIUM [Concomitant]
     Active Substance: PANTOPRAZOLE MAGNESIUM
     Dosage: UNK
  7. PERINDOPRIL [Concomitant]
     Active Substance: PERINDOPRIL
     Dosage: UNK
  8. ROSUVASTATIN [Concomitant]
     Active Substance: ROSUVASTATIN
     Dosage: UNK
     Route: 058

REACTIONS (18)
  - Abdominal distension [Unknown]
  - Abdominal pain [Unknown]
  - Arthralgia [Unknown]
  - Back pain [Unknown]
  - Decreased appetite [Unknown]
  - Diarrhoea [Unknown]
  - Fatigue [Unknown]
  - Flatulence [Unknown]
  - Gastrointestinal pain [Unknown]
  - Hyperhidrosis [Unknown]
  - Muscular weakness [Unknown]
  - Musculoskeletal stiffness [Unknown]
  - Myalgia [Unknown]
  - Nausea [Unknown]
  - Palpitations [Unknown]
  - Paraesthesia [Unknown]
  - Peripheral swelling [Unknown]
  - Tremor [Unknown]
